FAERS Safety Report 5140921-8 (Version None)
Quarter: 2006Q4

REPORT INFORMATION
  Report Type: 
  Country: None (occurrence: None)
  Receive Date: 20060914
  Receipt Date: 20060208
  Transmission Date: 20070319
  Serious: Yes (Other)
  Sender: FDA-Public Use
  Company Number: PHEH2005US09875

PATIENT
  Age: 79 Year
  Sex: Male
  Weight: 70.3 kg

DRUGS (6)
  1. DIOVAN [Suspect]
     Indication: HYPERTENSION
     Dosage: 80 MG,QD, ORAL
     Route: 048
     Dates: start: 20050815
  2. COREG [Concomitant]
  3. AMIODARONE HCL [Concomitant]
  4. HYTRIN [Concomitant]
  5. VYTORIN [Concomitant]
  6. WARFARIN SODIUM [Concomitant]

REACTIONS (3)
  - BLOOD CREATININE INCREASED [None]
  - DIZZINESS [None]
  - ORTHOSTATIC HYPOTENSION [None]
